FAERS Safety Report 8423470-0 (Version None)
Quarter: 2012Q2

REPORT INFORMATION
  Report Type: 
  Country: None (occurrence: None)
  Receive Date: 20120608
  Receipt Date: 20120604
  Transmission Date: 20120825
  Serious: Yes (Death, Hospitalization, Other)
  Sender: FDA-Public Use
  Company Number: US-ELI_LILLY_AND_COMPANY-US201205005556

PATIENT
  Sex: Female
  Weight: 47.166 kg

DRUGS (1)
  1. GEMZAR [Suspect]
     Indication: BREAST CANCER METASTATIC
     Dosage: UNK
     Dates: start: 20110527, end: 20110610

REACTIONS (4)
  - NEOPLASM PROGRESSION [None]
  - MALIGNANT ASCITES [None]
  - LEUKOPENIA [None]
  - THROMBOCYTOPENIA [None]
